FAERS Safety Report 18584833 (Version 1)
Quarter: 2020Q4

REPORT INFORMATION
  Report Type: Spontaneous
  Country: US (occurrence: US)
  Receive Date: 20201207
  Receipt Date: 20201207
  Transmission Date: 20210114
  Serious: No
  Sender: FDA-Public Use
  Company Number: US-MICRO LABS LIMITED-ML2020-03178

PATIENT
  Age: 79 Year
  Sex: Male
  Weight: 81.72 kg

DRUGS (3)
  1. AZILECT [Concomitant]
     Active Substance: RASAGILINE MESYLATE
     Indication: MOVEMENT DISORDER
     Route: 048
  2. PRAVASTATIN. [Concomitant]
     Active Substance: PRAVASTATIN
     Indication: BLOOD CALCIUM INCREASED
     Route: 048
     Dates: end: 20201015
  3. DORZOLAMIDE/TIMOLOL [Suspect]
     Active Substance: DORZOLAMIDE\TIMOLOL
     Indication: OCULAR HYPERTENSION
     Dosage: 22.3 MG/6.8 MG PER ML
     Route: 047
     Dates: start: 20201018, end: 20201018

REACTIONS (1)
  - Vision blurred [Not Recovered/Not Resolved]

NARRATIVE: CASE EVENT DATE: 20201018
